FAERS Safety Report 16718756 (Version 1)
Quarter: 2019Q3

REPORT INFORMATION
  Report Type: Spontaneous
  Country: US (occurrence: US)
  Receive Date: 20190820
  Receipt Date: 20190820
  Transmission Date: 20191005
  Serious: Yes (Hospitalization)
  Sender: FDA-Public Use
  Company Number: US-ROCHE-2374229

PATIENT
  Age: 49 Year
  Sex: Female

DRUGS (8)
  1. CLOPIDOGREL [Concomitant]
     Active Substance: CLOPIDOGREL BISULFATE
  2. FUROSEMIDE. [Concomitant]
     Active Substance: FUROSEMIDE
  3. ACTEMRA [Suspect]
     Active Substance: TOCILIZUMAB
     Indication: RHEUMATOID ARTHRITIS
     Dosage: 162UGM,WEEKLY , ONGOING: YES
     Route: 058
     Dates: start: 20180622
  4. DULOXETINE. [Concomitant]
     Active Substance: DULOXETINE
  5. METFORMIN [Concomitant]
     Active Substance: METFORMIN HYDROCHLORIDE
     Route: 065
  6. TRAMADOL. [Concomitant]
     Active Substance: TRAMADOL
  7. NITROGLYCERINE [Concomitant]
     Active Substance: NITROGLYCERIN
  8. GABAPENTIN. [Concomitant]
     Active Substance: GABAPENTIN

REACTIONS (3)
  - Rheumatoid arthritis [Unknown]
  - Injection site swelling [Unknown]
  - Product dose omission [Unknown]

NARRATIVE: CASE EVENT DATE: 20190805
